FAERS Safety Report 7569168-2 (Version None)
Quarter: 2011Q2

REPORT INFORMATION
  Report Type: 
  Country: None (occurrence: None)
  Receive Date: 20110623
  Receipt Date: 20110613
  Transmission Date: 20111010
  Serious: Yes (Hospitalization, Other)
  Sender: FDA-Public Use
  Company Number: PHEH2005US01797

PATIENT
  Sex: Male

DRUGS (42)
  1. DIFLUCAN [Concomitant]
     Dosage: UNK, UNK
  2. FAMOTIDINE [Concomitant]
     Dosage: UNK, UNK
  3. RIMANTADINE HYDROCHLORIDE [Concomitant]
     Dosage: UNK, UNK
  4. PERCOCET [Concomitant]
     Dosage: UNK
  5. AMOXIL [Concomitant]
  6. AREDIA [Suspect]
     Indication: OSTEOPOROSIS
     Dosage: 90 MG, QMO
     Dates: start: 19970827, end: 20021010
  7. OXYCODONE HCL [Concomitant]
     Dosage: UNK, UNK
  8. SOMA [Concomitant]
     Dosage: 300 MG
  9. FENTANYL [Concomitant]
  10. FLEXERIL [Concomitant]
  11. ETODOLAC [Concomitant]
     Dosage: 1 DF, BID
     Route: 048
  12. ZOMETA [Suspect]
     Indication: OSTEOPOROSIS
     Dosage: 4 MG, QMO
     Dates: start: 20021210, end: 20040923
  13. DURAGESIC-100 [Concomitant]
     Dosage: 50 MCG EVERY 3 DAYS
  14. OXYCONTIN [Concomitant]
     Dosage: UNK, UNK
  15. DIAZEPAM [Concomitant]
     Dosage: UNK, UNK
  16. HYDROMORPHONE HCL [Concomitant]
     Dosage: UNK, UNK
  17. VIAGRA [Concomitant]
     Dosage: UNK, UNK
  18. FLUMADINE [Concomitant]
     Dosage: UNK, UNK
  19. ZANAFLEX [Concomitant]
     Dosage: 2 MG, TID
  20. BACLOFEN [Concomitant]
     Dosage: 10 MG, TID
  21. ALPRAZOLAM [Concomitant]
     Dosage: UNK, UNK
  22. ACETAMINOPHEN AND HYDROCODONE BITARTRATE [Concomitant]
     Dosage: UNK, UNK
  23. CELEBREX [Concomitant]
     Dosage: UNK, UNK
  24. ANDROGEL [Concomitant]
     Dosage: UNK, UNK
  25. AVELOX [Concomitant]
     Dosage: UNK, UNK
  26. EFFEXOR [Concomitant]
     Dosage: 1 DF, BID
  27. METHADONE HCL [Concomitant]
     Dosage: 50 MG IN DIVIDED DOSES
  28. MORPHINE SULFATE [Concomitant]
  29. AMBIEN [Concomitant]
     Dosage: UNK, UNK
  30. CARISOPRODOL [Concomitant]
     Dosage: UNK, UNK
  31. PREDNISONE [Concomitant]
     Dosage: UNK, UNK
  32. LEVAQUIN [Concomitant]
     Dosage: UNK, UNK
  33. METHADONE HCL [Concomitant]
     Dosage: 30 MG, TID
  34. METHADONE HCL [Concomitant]
     Dosage: 2 TABLETS OF 10 MG THRICE PER DAY
  35. NABUMETONE [Concomitant]
  36. VALIUM [Concomitant]
  37. ROXICODONE [Concomitant]
     Dosage: UNK, UNK
  38. PRILOSEC [Concomitant]
     Dosage: UNK
  39. VITAMIN TAB [Concomitant]
  40. NEURONTIN [Concomitant]
     Dosage: UNK, UNK
  41. GUIATUSS A.C. [Concomitant]
     Dosage: UNK, UNK
  42. DILAUDID [Concomitant]
     Dosage: TWO 4 MG TABLETS A DAY

REACTIONS (59)
  - JAW DISORDER [None]
  - LUMBAR RADICULOPATHY [None]
  - LYMPHADENOPATHY MEDIASTINAL [None]
  - INTERVERTEBRAL DISC DEGENERATION [None]
  - INTERVERTEBRAL DISC DISPLACEMENT [None]
  - SENSITIVITY OF TEETH [None]
  - ARTHRITIS [None]
  - BONE DISORDER [None]
  - INTERVERTEBRAL DISC PROTRUSION [None]
  - PAIN IN EXTREMITY [None]
  - PROTHROMBIN TIME PROLONGED [None]
  - HYPOXIA [None]
  - MUSCULOSKELETAL PAIN [None]
  - INFLUENZA [None]
  - LUNG INFILTRATION [None]
  - PULMONARY EMBOLISM [None]
  - PAIN IN JAW [None]
  - ORAL PAIN [None]
  - GINGIVAL BLEEDING [None]
  - IMPAIRED HEALING [None]
  - OSTEOMYELITIS [None]
  - TOOTHACHE [None]
  - SPONDYLOARTHROPATHY [None]
  - DYSPEPSIA [None]
  - BACK DISORDER [None]
  - MUSCULAR WEAKNESS [None]
  - ERYTHEMA [None]
  - CARDIOVASCULAR DISORDER [None]
  - BACK PAIN [None]
  - COORDINATION ABNORMAL [None]
  - HEPATIC STEATOSIS [None]
  - ANKYLOSING SPONDYLITIS [None]
  - FLATBACK SYNDROME [None]
  - OEDEMA PERIPHERAL [None]
  - VENOUS OCCLUSION [None]
  - OSTEONECROSIS OF JAW [None]
  - SOFT TISSUE DISORDER [None]
  - DRY MOUTH [None]
  - EMPHYSEMA [None]
  - ARTHRALGIA [None]
  - GAIT DISTURBANCE [None]
  - LYMPHADENOPATHY [None]
  - TOOTH DEPOSIT [None]
  - SPINAL FRACTURE [None]
  - FORAMEN MAGNUM STENOSIS [None]
  - OSTEOPOROSIS [None]
  - HEPATOMEGALY [None]
  - ODONTOGENIC CYST [None]
  - JOINT CREPITATION [None]
  - RADICULAR PAIN [None]
  - MUSCULOSKELETAL DISCOMFORT [None]
  - DEEP VEIN THROMBOSIS [None]
  - WOUND DEHISCENCE [None]
  - LOOSE TOOTH [None]
  - ATELECTASIS [None]
  - NECK PAIN [None]
  - OSTEOARTHRITIS [None]
  - HYPOAESTHESIA [None]
  - POSTOPERATIVE WOUND COMPLICATION [None]
